FAERS Safety Report 19733809 (Version 2)
Quarter: 2022Q1

REPORT INFORMATION
  Report Type: Spontaneous
  Country: US (occurrence: US)
  Receive Date: 20210824
  Receipt Date: 20220202
  Transmission Date: 20220423
  Serious: No
  Sender: FDA-Public Use
  Company Number: US-BOEHRINGERINGELHEIM-2021-BI-123068

PATIENT
  Age: 80 Year
  Sex: Male

DRUGS (1)
  1. COMBIVENT [Suspect]
     Active Substance: ALBUTEROL SULFATE\IPRATROPIUM BROMIDE
     Indication: Chronic obstructive pulmonary disease
     Dosage: 8-10 TIMES A DAY- RX SAYS 1 PUFF 6 TIMES DAILY AT 2 HOUR INTERVALS
     Route: 048

REACTIONS (1)
  - Intentional overdose [Unknown]
